FAERS Safety Report 7403636-9 (Version None)
Quarter: 2011Q2

REPORT INFORMATION
  Report Type: 
  Country: None (occurrence: None)
  Receive Date: 20110408
  Receipt Date: 20110329
  Transmission Date: 20111010
  Serious: Yes (Hospitalization)
  Sender: FDA-Public Use
  Company Number: PHHO2011FR05656

PATIENT
  Sex: Male
  Weight: 81 kg

DRUGS (8)
  1. PREDNISONE [Suspect]
     Indication: RENAL TRANSPLANT
     Dosage: 10 MG, UNK
     Route: 048
     Dates: start: 20100817
  2. PRAVASTATIN [Concomitant]
  3. TIENAM [Suspect]
     Indication: DIARRHOEA
     Dosage: 100 MG, BID
     Dates: start: 20110104, end: 20110123
  4. TEMERIT [Concomitant]
  5. NEORAL [Suspect]
     Indication: RENAL TRANSPLANT
     Dosage: 100 MG, BID
     Route: 048
     Dates: start: 20100813, end: 20110123
  6. NEORECORMON [Concomitant]
  7. MYCOPHENOLIC ACID [Suspect]
     Indication: RENAL TRANSPLANT
     Dosage: 720 MG, BID
     Route: 048
     Dates: start: 20100812, end: 20110123
  8. CELLCEPT [Concomitant]
     Indication: RENAL TRANSPLANT

REACTIONS (3)
  - RHINORRHOEA [None]
  - STATUS EPILEPTICUS [None]
  - DIARRHOEA [None]
